FAERS Safety Report 6942788-1 (Version None)
Quarter: 2010Q3

REPORT INFORMATION
  Report Type: 
  Country: None (occurrence: None)
  Receive Date: 20100824
  Receipt Date: 20100824
  Transmission Date: 20110219
  Serious: Yes (Life-Threatening, Hospitalization, Disabling)
  Sender: FDA-Public Use
  Company Number: None

PATIENT
  Sex: Male
  Weight: 83 kg

DRUGS (1)
  1. OCTAGAM [Suspect]
     Indication: IMMUNODEFICIENCY COMMON VARIABLE
     Dosage: 70 GRAMS EVERY 6 WEEKS IV DRIP
     Route: 041
     Dates: start: 20100807, end: 20100821

REACTIONS (4)
  - CEREBROVASCULAR ACCIDENT [None]
  - INFUSION RELATED REACTION [None]
  - NEUROLOGICAL SYMPTOM [None]
  - PRODUCT QUALITY ISSUE [None]
